FAERS Safety Report 7946771-9 (Version None)
Quarter: 2011Q4

REPORT INFORMATION
  Report Type: 
  Country: None (occurrence: None)
  Receive Date: 20111125
  Receipt Date: 20111013
  Transmission Date: 20120403
  Serious: Yes (Hospitalization, Other)
  Sender: FDA-Public Use
  Company Number: ADR-2011-11589

PATIENT
  Age: 4 Year
  Sex: Male

DRUGS (12)
  1. MYSTAN [Concomitant]
  2. ASVERIN [Concomitant]
  3. DANTRIUM [Concomitant]
  4. ONON [Concomitant]
  5. BACLOFEN [Suspect]
     Indication: MUSCLE SPASTICITY
     Dosage: DAILY, INTRATHECAL
     Route: 037
  6. MUCOSIL-10 [Concomitant]
  7. TRICLORYL [Concomitant]
  8. MUCODYNE [Concomitant]
  9. DIAZEPAM [Concomitant]
  10. PERIACTIN [Concomitant]
  11. PHENOBARBITAL TAB [Concomitant]
  12. ARTANE [Concomitant]

REACTIONS (1)
  - IMPLANT SITE EFFUSION [None]
